FAERS Safety Report 9833254 (Version 2)
Quarter: 2014Q1

REPORT INFORMATION
  Report Type: Report from Study
  Country: US (occurrence: US)
  Receive Date: 20140121
  Receipt Date: 20140121
  Transmission Date: 20141002
  Serious: Yes (Other)
  Sender: FDA-Public Use
  Company Number: US-B.I. PHARMACEUTICALS,INC./RIDGEFIELD-2014-BI-01013BI

PATIENT
  Age: 61 Year
  Sex: Male

DRUGS (9)
  1. GILOTRIF [Suspect]
     Indication: NON-SMALL CELL LUNG CANCER
     Dosage: 40 MG
     Route: 048
     Dates: start: 20131213
  2. GILOTRIF [Suspect]
     Dosage: 40 MG
     Route: 048
     Dates: start: 20131223, end: 20140107
  3. ADVAIR [Concomitant]
     Dosage: 1100 PUF
  4. XARELTO [Concomitant]
     Dosage: 20 MG
  5. MULTIPLE VITAMIN WITH MINERALS AT HS [Concomitant]
  6. BENADRYL [Concomitant]
     Indication: SLEEP DISORDER
  7. OMEPRAZOLE DR [Concomitant]
     Dosage: 20 MG
  8. METAMUCIL [Concomitant]
  9. PROBIOTIC [Concomitant]

REACTIONS (11)
  - Blood disorder [Unknown]
  - Liver disorder [Unknown]
  - Local swelling [Recovered/Resolved]
  - Diarrhoea [Not Recovered/Not Resolved]
  - Epistaxis [Not Recovered/Not Resolved]
  - Dysuria [Not Recovered/Not Resolved]
  - Acne [Not Recovered/Not Resolved]
  - Muscular weakness [Recovered/Resolved]
  - Abdominal distension [Not Recovered/Not Resolved]
  - Liver function test abnormal [Not Recovered/Not Resolved]
  - Fatigue [Unknown]
